FAERS Safety Report 6933589-9 (Version None)
Quarter: 2010Q3

REPORT INFORMATION
  Report Type: 
  Country: None (occurrence: None)
  Receive Date: 20100817
  Receipt Date: 20100803
  Transmission Date: 20110219
  Serious: Yes (Death, Life-Threatening, Disabling)
  Sender: FDA-Public Use
  Company Number: 2010PV000028

PATIENT
  Age: 67 Year
  Sex: Male

DRUGS (6)
  1. DEPOCYT [Suspect]
     Indication: METASTASES TO MENINGES
     Dosage: 50 MG;X1;INTH
     Route: 037
     Dates: start: 20100608, end: 20100608
  2. DEXAMETHASONE [Concomitant]
  3. BISOPROLOL [Concomitant]
  4. PANTAZOL [Concomitant]
  5. COTRIM [Concomitant]
  6. ARA-C [Concomitant]

REACTIONS (3)
  - APRAXIA [None]
  - DISORIENTATION [None]
  - GENERAL PHYSICAL HEALTH DETERIORATION [None]
